FAERS Safety Report 22289018 (Version 1)
Quarter: 2023Q2

REPORT INFORMATION
  Report Type: Report from Study
  Country: US (occurrence: US)
  Receive Date: 20230505
  Receipt Date: 20230505
  Transmission Date: 20230721
  Serious: No
  Sender: FDA-Public Use
  Company Number: US-002147023-NVSC2023US100730

PATIENT
  Sex: Male
  Weight: 117.91 kg

DRUGS (5)
  1. KETOCONAZOLE [Suspect]
     Active Substance: KETOCONAZOLE
     Indication: Psoriasis
     Dosage: UNK
     Route: 065
  2. CLOBETASOL [Suspect]
     Active Substance: CLOBETASOL
     Indication: Psoriasis
     Dosage: UNK
     Route: 065
  3. HYDROCORTISONE [Suspect]
     Active Substance: HYDROCORTISONE
     Indication: Psoriasis
     Dosage: UNK
     Route: 065
  4. PENICILLIN G SODIUM [Suspect]
     Active Substance: PENICILLIN G SODIUM
     Indication: Product used for unknown indication
     Dosage: UNK
     Route: 065
  5. TACROLIMUS [Suspect]
     Active Substance: TACROLIMUS
     Indication: Psoriasis
     Dosage: UNK
     Route: 065

REACTIONS (9)
  - Haemangioma of skin [Unknown]
  - Lentigo [Unknown]
  - Skin exfoliation [Unknown]
  - Papule [Unknown]
  - Seborrhoeic keratosis [Unknown]
  - Ephelides [Unknown]
  - Idiopathic guttate hypomelanosis [Unknown]
  - Psoriasis [Unknown]
  - Product use in unapproved indication [Unknown]
